FAERS Safety Report 19387037 (Version 1)
Quarter: 2021Q2

REPORT INFORMATION
  Report Type: Spontaneous
  Country: US (occurrence: US)
  Receive Date: 20210608
  Receipt Date: 20210608
  Transmission Date: 20210717
  Serious: Yes (Other)
  Sender: FDA-Public Use
  Company Number: US-AMGEN-USASP2021084875

PATIENT
  Age: 69 Year
  Sex: Female

DRUGS (3)
  1. COVID?19 VACCINE [Concomitant]
     Dosage: UNK
     Dates: start: 20210301
  2. PROLIA [Suspect]
     Active Substance: DENOSUMAB
     Indication: OSTEOPOROSIS POSTMENOPAUSAL
     Dosage: UNK
     Route: 065
  3. COVID?19 VACCINE [Concomitant]
     Dosage: UNK
     Dates: start: 202102

REACTIONS (3)
  - Injection site urticaria [Unknown]
  - Pain in extremity [Unknown]
  - Rectal cancer [Unknown]

NARRATIVE: CASE EVENT DATE: 20210512
